FAERS Safety Report 7677002-5 (Version None)
Quarter: 2011Q3

REPORT INFORMATION
  Report Type: 
  Country: None (occurrence: None)
  Receive Date: 20110811
  Receipt Date: 20110803
  Transmission Date: 20111222
  Serious: Yes (Other)
  Sender: FDA-Public Use
  Company Number: CA-AMGEN-KDL438408

PATIENT
  Age: 35 Year
  Sex: Female
  Weight: 64 kg

DRUGS (4)
  1. NPLATE [Suspect]
     Dosage: 250 A?G, QWK
     Route: 058
     Dates: start: 20100907
  2. NPLATE [Suspect]
     Indication: IDIOPATHIC THROMBOCYTOPENIC PURPURA
     Dosage: 375 A?G, QWK
     Route: 058
  3. NPLATE [Suspect]
  4. NPLATE [Suspect]
     Dosage: 750 A?G, QWK
     Route: 058
     Dates: start: 20100907

REACTIONS (19)
  - GINGIVAL BLEEDING [None]
  - HYPOAESTHESIA [None]
  - FLUSHING [None]
  - PRURITUS [None]
  - DIZZINESS [None]
  - NAUSEA [None]
  - FATIGUE [None]
  - ERYTHEMA [None]
  - PARAESTHESIA [None]
  - RASH PRURITIC [None]
  - RASH [None]
  - ABDOMINAL DISTENSION [None]
  - HYPOAESTHESIA ORAL [None]
  - HEADACHE [None]
  - DYSPEPSIA [None]
  - OEDEMA PERIPHERAL [None]
  - DRY SKIN [None]
  - CONTUSION [None]
  - NODULE [None]
